FAERS Safety Report 10237366 (Version 1)
Quarter: 2014Q2

REPORT INFORMATION
  Report Type: Report from Study
  Country: US (occurrence: US)
  Receive Date: 20140613
  Receipt Date: 20140613
  Transmission Date: 20141212
  Serious: Yes (Other)
  Sender: FDA-Public Use
  Company Number: US-ABBVIE-14P-163-1245796-00

PATIENT
  Age: 76 Year
  Sex: Female
  Weight: 59.93 kg

DRUGS (4)
  1. KALETRA 200/50 [Suspect]
     Indication: HIV INFECTION
     Route: 048
     Dates: end: 201402
  2. UNKNOWN HIV MEDICATIONS [Suspect]
     Indication: HIV INFECTION
     Dates: start: 20140402, end: 20140523
  3. UNKNOWN BLOOD PRESSURE MEDICATION [Suspect]
     Indication: RENAL DISORDER
     Dates: start: 201402, end: 201405
  4. ABACAVIR [Suspect]
     Indication: PRODUCT USED FOR UNKNOWN INDICATION

REACTIONS (7)
  - Swollen tongue [Recovered/Resolved]
  - Renal disorder [Not Recovered/Not Resolved]
  - Ocular hyperaemia [Recovered/Resolved]
  - Lip disorder [Recovered/Resolved]
  - Skin discolouration [Recovering/Resolving]
  - Hypersensitivity [Recovering/Resolving]
  - Erythema [Recovering/Resolving]
